FAERS Safety Report 21816490 (Version 1)
Quarter: 2023Q1

REPORT INFORMATION
  Report Type: Report from Study
  Country: US (occurrence: US)
  Receive Date: 20230104
  Receipt Date: 20230104
  Transmission Date: 20230418
  Serious: Yes (Other)
  Sender: FDA-Public Use
  Company Number: US-TAKEDA-2022TUS063839

PATIENT
  Age: 66 Year
  Sex: Female

DRUGS (1)
  1. VEDOLIZUMAB [Suspect]
     Active Substance: VEDOLIZUMAB
     Indication: Colitis ulcerative
     Dosage: 300 MILLIGRAM
     Route: 042
     Dates: start: 202206

REACTIONS (5)
  - Colitis ulcerative [Unknown]
  - Female genital tract fistula [Unknown]
  - Wound infection [Unknown]
  - Abdominal pain lower [Unknown]
  - Pyrexia [Unknown]

NARRATIVE: CASE EVENT DATE: 20220915
